FAERS Safety Report 6967059-9 (Version None)
Quarter: 2010Q3

REPORT INFORMATION
  Report Type: 
  Country: None (occurrence: None)
  Receive Date: 20100907
  Receipt Date: 20100823
  Transmission Date: 20110219
  Serious: Yes (Hospitalization)
  Sender: FDA-Public Use
  Company Number: GB-ELI_LILLY_AND_COMPANY-GB201008007535

PATIENT
  Age: 77 Year
  Sex: Female
  Weight: 60.32 kg

DRUGS (11)
  1. FORTEO [Suspect]
     Dosage: UNK, UNKNOWN
     Route: 058
     Dates: start: 20091118, end: 20100708
  2. BECLOMETHASONE DIPROPIONATE [Concomitant]
     Dosage: UNK, UNKNOWN
     Route: 065
  3. BUTRANS [Concomitant]
     Dosage: UNK, UNKNOWN
     Route: 065
  4. CALCICHEW D3 [Concomitant]
     Dosage: UNK, UNKNOWN
     Route: 065
  5. ACETAMINOPHEN AND CODEINE PHOSPHATE [Concomitant]
     Dosage: UNK, UNKNOWN
     Route: 065
  6. NEUTROGENA DERMATOLOGICAL CREAM [Concomitant]
     Dosage: UNK, UNKNOWN
     Route: 065
  7. ACETAMINOPHEN [Concomitant]
     Dosage: UNK, UNKNOWN
     Route: 065
  8. PILOCARPINE HYDROCHLORIDE [Concomitant]
     Dosage: UNK, UNKNOWN
     Route: 065
  9. RANITIDINE [Concomitant]
     Dosage: UNK, UNKNOWN
     Route: 065
  10. TEOPTIC [Concomitant]
     Dosage: UNK, UNKNOWN
     Route: 065
  11. XALATAN [Concomitant]
     Dosage: UNK, UNKNOWN
     Route: 065

REACTIONS (1)
  - BLOOD PRESSURE DIASTOLIC DECREASED [None]
